FAERS Safety Report 6636617-3 (Version None)
Quarter: 2010Q1

REPORT INFORMATION
  Report Type: 
  Country: None (occurrence: None)
  Receive Date: 20100316
  Receipt Date: 20100310
  Transmission Date: 20100710
  Serious: Yes (Hospitalization)
  Sender: FDA-Public Use
  Company Number: AU-MERCK-1003USA01653

PATIENT
  Age: 65 Year
  Sex: Female

DRUGS (5)
  1. FOSAMAX PLUS D [Suspect]
     Indication: BONE DENSITY DECREASED
     Route: 048
     Dates: start: 20080101, end: 20100101
  2. FOSAMAX PLUS D [Suspect]
     Route: 048
     Dates: start: 20100101
  3. PREDNISONE [Concomitant]
     Indication: SARCOIDOSIS
     Route: 065
  4. FUROSEMIDE [Concomitant]
     Route: 065
  5. CORTISONE [Suspect]
     Route: 065

REACTIONS (2)
  - ASTHENIA [None]
  - BACK PAIN [None]
